FAERS Safety Report 8243454-5 (Version None)
Quarter: 2012Q1

REPORT INFORMATION
  Report Type: 
  Country: None (occurrence: None)
  Receive Date: 20120329
  Receipt Date: 20110330
  Transmission Date: 20120608
  Serious: Yes (Hospitalization)
  Sender: FDA-Public Use
  Company Number: JP-ROCHE-GNE312584

PATIENT
  Age: 62 Year
  Sex: Male
  Weight: 50 kg

DRUGS (3)
  1. RANIBIZUMAB [Suspect]
     Indication: AGE-RELATED MACULAR DEGENERATION
     Route: 050
     Dates: start: 20100812
  2. MOXIFLOXACIN HYDROCHLORIDE [Concomitant]
     Dates: start: 20100801, end: 20100901
  3. GATIFLOXACIN [Concomitant]
     Dates: start: 20100801, end: 20110901

REACTIONS (6)
  - RETINAL HAEMORRHAGE [None]
  - VITRITIS [None]
  - IRITIS [None]
  - UVEITIS [None]
  - ENDOPHTHALMITIS [None]
  - IRIDOCYCLITIS [None]
